FAERS Safety Report 8295891-0 (Version None)
Quarter: 2012Q2

REPORT INFORMATION
  Report Type: 
  Country: None (occurrence: None)
  Receive Date: 20120418
  Receipt Date: 20120406
  Transmission Date: 20120825
  Serious: Yes (Other)
  Sender: FDA-Public Use
  Company Number: JP-VERTEX PHARMACEUTICALS INC.-AE-2012-005164

PATIENT
  Age: 67 Year
  Sex: Female

DRUGS (12)
  1. TELAVIC (TELAPREVIR) [Suspect]
     Indication: HEPATITIS C
     Route: 048
     Dates: start: 20120217, end: 20120223
  2. TELAVIC (TELAPREVIR) [Suspect]
     Route: 048
     Dates: start: 20120224, end: 20120322
  3. RIBAVIRIN [Concomitant]
     Route: 048
     Dates: start: 20120316
  4. RIBAVIRIN [Concomitant]
     Indication: HEPATITIS C
     Route: 048
     Dates: start: 20120217, end: 20120223
  5. PEGINTERFERON ALFA-2B [Concomitant]
     Route: 051
     Dates: start: 20120330
  6. DIOVAN [Concomitant]
     Route: 048
  7. URSO 250 [Concomitant]
     Route: 048
     Dates: end: 20120224
  8. PEGINTERFERON ALFA-2B [Concomitant]
     Indication: HEPATITIS C
     Route: 051
     Dates: start: 20120217, end: 20120329
  9. RIBAVIRIN [Concomitant]
     Route: 048
     Dates: start: 20120224, end: 20120315
  10. AMLODIPINE [Concomitant]
     Route: 048
  11. INNOLET [Concomitant]
     Route: 058
  12. TELAVIC (TELAPREVIR) [Suspect]
     Route: 048
     Dates: start: 20120323

REACTIONS (5)
  - ANAEMIA [None]
  - HYPERURICAEMIA [None]
  - NAUSEA [None]
  - BLOOD CREATININE INCREASED [None]
  - DECREASED APPETITE [None]
